FAERS Safety Report 9132466 (Version 1)
Quarter: 2013Q1

REPORT INFORMATION
  Report Type: Spontaneous
  Country: US (occurrence: US)
  Receive Date: 20130301
  Receipt Date: 20130301
  Transmission Date: 20140127
  Serious: Yes (Hospitalization)
  Sender: FDA-Public Use
  Company Number: US-BRISTOL-MYERS SQUIBB COMPANY-17400474

PATIENT
  Age: 77 Year
  Sex: Male
  Weight: 81.63 kg

DRUGS (3)
  1. COUMADIN [Suspect]
     Dosage: LAST DOSE:14-FEB-2013
  2. JANTOVEN [Suspect]
  3. PRADAXA [Suspect]

REACTIONS (6)
  - Prostatic disorder [Unknown]
  - Cardiac disorder [Unknown]
  - Hernia [Unknown]
  - Bladder neck suspension [Unknown]
  - Limb operation [Unknown]
  - Pruritus [Unknown]
